FAERS Safety Report 7576633-0 (Version None)
Quarter: 2011Q2

REPORT INFORMATION
  Report Type: 
  Country: None (occurrence: None)
  Receive Date: 20110628
  Receipt Date: 20110616
  Transmission Date: 20111010
  Serious: Yes (Hospitalization, Other)
  Sender: FDA-Public Use
  Company Number: US-ELI_LILLY_AND_COMPANY-US201002003680

PATIENT
  Sex: Male
  Weight: 106.12 kg

DRUGS (5)
  1. METFORMIN HCL [Concomitant]
     Dosage: 500 MG, BID
  2. CRESTOR [Concomitant]
     Dosage: 20 MG, QD
  3. PROTONIX [Concomitant]
     Dosage: 40 MG, QD
  4. RAMIPRIL [Concomitant]
     Dosage: 2.5 MG, QD
  5. BYETTA [Suspect]
     Dosage: 5 UG, BID
     Route: 058
     Dates: start: 20080801, end: 20081231

REACTIONS (3)
  - OFF LABEL USE [None]
  - PANCREATITIS CHRONIC [None]
  - PANCREATITIS [None]
